FAERS Safety Report 9482832 (Version 1)
Quarter: 2013Q3

REPORT INFORMATION
  Report Type: Spontaneous
  Country: US (occurrence: US)
  Receive Date: 20130828
  Receipt Date: 20130828
  Transmission Date: 20140515
  Serious: No
  Sender: FDA-Public Use
  Company Number: US-009507513-1308USA012255

PATIENT
  Age: 58 Year
  Sex: Female

DRUGS (1)
  1. CLARINEX [Suspect]
     Indication: HYPERSENSITIVITY
     Dosage: 5 MG, ONCE A DAY
     Route: 048
     Dates: start: 1998, end: 20130826

REACTIONS (3)
  - Feeling jittery [Recovered/Resolved]
  - Insomnia [Recovered/Resolved]
  - Drug dose omission [Unknown]
